FAERS Safety Report 9521823 (Version 1)
Quarter: 2013Q3

REPORT INFORMATION
  Report Type: Report from Study
  Country: DE (occurrence: DE)
  Receive Date: 20130913
  Receipt Date: 20130913
  Transmission Date: 20140515
  Serious: No
  Sender: FDA-Public Use
  Company Number: PHHY2013DE098148

PATIENT
  Sex: Male

DRUGS (7)
  1. AMN107 [Suspect]
     Indication: CHRONIC MYELOID LEUKAEMIA
     Dosage: 600 MG, PER DAY
     Route: 048
     Dates: start: 20130221, end: 20130224
  2. AMN107 [Suspect]
     Dosage: 300 MG, PER DAY
     Route: 048
     Dates: start: 20130307, end: 20130320
  3. AMN107 [Suspect]
     Dosage: 450 MG, PER DAY
     Route: 048
     Dates: start: 20130321, end: 20130414
  4. AMN107 [Suspect]
     Dosage: 600 MG, PER DAY
     Route: 048
     Dates: start: 20130415
  5. IBUPROFEN [Concomitant]
     Dosage: UNK UKN, UNK
     Dates: start: 2012, end: 20130307
  6. OMEPRAZOLE [Concomitant]
     Dosage: UNK UKN, UNK
     Dates: start: 2012
  7. FENTANYL [Concomitant]
     Dosage: 75 UG/H
     Dates: start: 20130307

REACTIONS (1)
  - Pruritus [Not Recovered/Not Resolved]
